FAERS Safety Report 4649336-X (Version None)
Quarter: 2005Q2

REPORT INFORMATION
  Report Type: 
  Country: None (occurrence: None)
  Receive Date: 20050429
  Receipt Date: 20041125
  Transmission Date: 20051028
  Serious: Yes (Hospitalization)
  Sender: FDA-Public Use
  Company Number: NZ-ABBOTT-04P-118-0281696-00

PATIENT
  Sex: Male

DRUGS (5)
  1. EPILIM [Suspect]
     Indication: CONVULSION
     Route: 048
     Dates: start: 20040906, end: 20041115
  2. CARBAMAZEPINE [Concomitant]
     Indication: CONVULSION
     Route: 048
  3. LACTULOSE [Concomitant]
     Indication: CONSTIPATION
     Route: 048
  4. MELATONIN [Concomitant]
     Indication: SLEEP DISORDER
     Route: 048
     Dates: start: 20041026
  5. HYOSCINE HBR HYT [Concomitant]
     Indication: SALIVARY GLAND DISORDER
     Route: 048

REACTIONS (8)
  - AGITATION [None]
  - ILEUS [None]
  - PALLOR [None]
  - PANCREATITIS ACUTE [None]
  - RASH ERYTHEMATOUS [None]
  - RESTLESSNESS [None]
  - SLEEP DISORDER [None]
  - TACHYCARDIA [None]
